FAERS Safety Report 10090585 (Version 2)
Quarter: 2014Q2

REPORT INFORMATION
  Report Type: Spontaneous
  Country: US (occurrence: US)
  Receive Date: 20140421
  Receipt Date: 20140605
  Transmission Date: 20141212
  Serious: Yes (Life-Threatening, Hospitalization)
  Sender: FDA-Public Use
  Company Number: US-BAYER-2014-056765

PATIENT
  Age: 23 Year
  Sex: Female

DRUGS (13)
  1. YAZ [Suspect]
  2. ATROPIN [Concomitant]
  3. DOPAMINE [Concomitant]
  4. MANNITOL [Concomitant]
  5. ESOMEPRAZOLE [Concomitant]
  6. CHLORHEXIDINE [CHLORHEXIDINE] [Concomitant]
  7. DOCUSATE SODIUM W/SENNA [Concomitant]
  8. OXACILLIN [Concomitant]
     Route: 042
  9. NOREPINEPHRINE BITARTRATE [Concomitant]
     Route: 042
  10. NICARDIPINE [Concomitant]
     Route: 042
  11. FENTANYL [Concomitant]
     Route: 042
  12. CISATRACURIUM [Concomitant]
     Route: 042
  13. PENTOBARBITAL SODIUM [Concomitant]
     Route: 042

REACTIONS (1)
  - Subarachnoid haemorrhage [None]
